FAERS Safety Report 7526259-X (Version None)
Quarter: 2011Q2

REPORT INFORMATION
  Report Type: 
  Country: None (occurrence: None)
  Receive Date: 20110606
  Receipt Date: 20110531
  Transmission Date: 20111010
  Serious: Yes (Other)
  Sender: FDA-Public Use
  Company Number: FI-CUBIST-2011S1000391

PATIENT
  Age: 75 Year
  Sex: Male

DRUGS (7)
  1. OMEPRAZOLE [Concomitant]
     Indication: PRODUCT USED FOR UNKNOWN INDICATION
  2. METRONIDAZOLE HCL [Concomitant]
     Indication: PRODUCT USED FOR UNKNOWN INDICATION
     Dates: start: 20110412, end: 20110509
  3. CARDACE /00885601/ [Concomitant]
     Indication: PRODUCT USED FOR UNKNOWN INDICATION
  4. METOPROLOL SUCCINATE [Concomitant]
     Indication: PRODUCT USED FOR UNKNOWN INDICATION
  5. ZYVOX [Concomitant]
     Indication: PRODUCT USED FOR UNKNOWN INDICATION
     Dates: start: 20110504, end: 20110509
  6. LEVOFLOXACIN [Concomitant]
     Indication: PRODUCT USED FOR UNKNOWN INDICATION
     Dates: start: 20110412, end: 20110509
  7. CUBICIN [Suspect]
     Indication: INFECTION
     Route: 042
     Dates: start: 20110412, end: 20110504

REACTIONS (2)
  - ORGANISING PNEUMONIA [None]
  - EOSINOPHILIC PNEUMONIA [None]
